FAERS Safety Report 18514153 (Version 1)
Quarter: 2020Q4

REPORT INFORMATION
  Report Type: Spontaneous
  Country: US (occurrence: US)
  Receive Date: 20201118
  Receipt Date: 20201118
  Transmission Date: 20210114
  Serious: No
  Sender: FDA-Public Use
  Company Number: US-ALLERGAN-2029521US

PATIENT
  Age: 84 Year
  Sex: Male

DRUGS (4)
  1. LATANOPROST. [Concomitant]
     Active Substance: LATANOPROST
     Indication: GLAUCOMA
     Dosage: UNK, BID
     Route: 047
  2. ALPHAGAN P [Suspect]
     Active Substance: BRIMONIDINE TARTRATE
     Indication: GLAUCOMA
     Dosage: UNK, BID
     Route: 047
  3. ALPHAGAN P [Suspect]
     Active Substance: BRIMONIDINE TARTRATE
     Dosage: UNK, TID
     Route: 047
  4. ALPHAGAN P [Suspect]
     Active Substance: BRIMONIDINE TARTRATE
     Dosage: UNK, BID
     Route: 047

REACTIONS (8)
  - Incorrect dose administered [Unknown]
  - Lacrimation increased [Not Recovered/Not Resolved]
  - Ocular hyperaemia [Unknown]
  - Foreign body sensation in eyes [Not Recovered/Not Resolved]
  - Dry eye [Not Recovered/Not Resolved]
  - Visual impairment [Not Recovered/Not Resolved]
  - Eye pain [Not Recovered/Not Resolved]
  - Hypersensitivity [Not Recovered/Not Resolved]

NARRATIVE: CASE EVENT DATE: 2020
